FAERS Safety Report 6527109-0 (Version None)
Quarter: 2010Q1

REPORT INFORMATION
  Report Type: 
  Country: None (occurrence: None)
  Receive Date: 20100105
  Receipt Date: 20091228
  Transmission Date: 20100710
  Serious: Yes (Other)
  Sender: FDA-Public Use
  Company Number: CA-BAYER-200911657BCC

PATIENT
  Age: 72 Year
  Sex: Male
  Weight: 100 kg

DRUGS (7)
  1. ASPIRIN [Suspect]
     Indication: ARTHRITIS
     Route: 048
  2. ASPIRIN [Suspect]
     Dosage: TAKES EVERY OTHER WEEK ALTERNATING WITH ACETAMINOPHEN OR TYLENOL
     Route: 048
  3. COUMADIN [Concomitant]
     Indication: DRUG USE FOR UNKNOWN INDICATION
     Route: 065
  4. LECTOPAM TAB [Concomitant]
     Indication: INSOMNIA
     Route: 048
  5. TYLENOL (CAPLET) [Concomitant]
     Indication: DRUG USE FOR UNKNOWN INDICATION
     Dosage: TAKES EVERY OTHER WEEK ALTERNATING WITH ASPIRIN
     Route: 048
  6. ACETAMINOPHEN [Concomitant]
     Dosage: AS USED: 100 MG  UNIT DOSE: 500 MG
     Route: 048
  7. LECTOPAM TAB [Concomitant]
     Indication: ANXIETY
     Dosage: UNIT DOSE: 3 MG
     Route: 065
     Dates: start: 20090901

REACTIONS (6)
  - DIZZINESS [None]
  - FALL [None]
  - HEADACHE [None]
  - HEMICEPHALALGIA [None]
  - LOSS OF CONSCIOUSNESS [None]
  - UNEVALUABLE EVENT [None]
